FAERS Safety Report 5149964-1 (Version None)
Quarter: 2006Q4

REPORT INFORMATION
  Report Type: 
  Country: None (occurrence: None)
  Receive Date: 20061108
  Receipt Date: 20061026
  Transmission Date: 20070319
  Serious: Yes (Hospitalization, Other)
  Sender: FDA-Public Use
  Company Number: 2006131525

PATIENT
  Sex: Female
  Weight: 67.1324 kg

DRUGS (6)
  1. LIPITOR [Suspect]
     Indication: BLOOD CHOLESTEROL INCREASED
     Dosage: 10 MG
     Dates: start: 20040101, end: 20060917
  2. ATENOLOL [Concomitant]
  3. ORAL ANTIDIABETICS                 (ORAL ANTIDIABETICS) [Concomitant]
  4. ANTIDEPRESSANTS                 (ANTIDEPRESSANTS) [Concomitant]
  5. LASIX [Concomitant]
  6. ANTIPSYCHOTICS                  (ANTIPSYCHOTICS) [Concomitant]

REACTIONS (19)
  - ASTHENIA [None]
  - CARDIOMYOPATHY [None]
  - CHROMATURIA [None]
  - DYSSTASIA [None]
  - FALL [None]
  - GAIT DISTURBANCE [None]
  - HEART RATE DECREASED [None]
  - HIGH DENSITY LIPOPROTEIN DECREASED [None]
  - LOW DENSITY LIPOPROTEIN INCREASED [None]
  - MOVEMENT DISORDER [None]
  - NERVOUS SYSTEM DISORDER [None]
  - NEUROPATHY PERIPHERAL [None]
  - OEDEMA PERIPHERAL [None]
  - PERIPHERAL VASCULAR DISORDER [None]
  - PERONEAL NERVE PALSY [None]
  - URINARY INCONTINENCE [None]
  - URINE ODOUR ABNORMAL [None]
  - WEIGHT DECREASED [None]
  - WHEELCHAIR USER [None]
